FAERS Safety Report 15714559 (Version 5)
Quarter: 2020Q3

REPORT INFORMATION
  Report Type: Report from Study
  Country: JP (occurrence: JP)
  Receive Date: 20181212
  Receipt Date: 20200915
  Transmission Date: 20201102
  Serious: Yes (Hospitalization, Other)
  Sender: FDA-Public Use
  Company Number: JP-GILEAD-2018-0379488

PATIENT
  Age: 40 Year
  Sex: Male

DRUGS (10)
  1. DEPAS [ETIZOLAM] [Suspect]
     Active Substance: ETIZOLAM
     Indication: PRODUCT USED FOR UNKNOWN INDICATION
     Dosage: LARGE AMOUNT TAKEN
     Route: 065
     Dates: start: 20170529, end: 20170529
  2. DEPAS [ETIZOLAM] [Suspect]
     Active Substance: ETIZOLAM
     Dosage: UNK
     Route: 048
     Dates: start: 20170401, end: 20170601
  3. SAMTIREL [Concomitant]
     Active Substance: ATOVAQUONE
     Indication: PROPHYLAXIS
     Dosage: UNK
     Route: 048
     Dates: start: 20170606, end: 201805
  4. EMTRICITABINE/TENOFOVIR ALAFENAMIDE [Suspect]
     Active Substance: EMTRICITABINE\TENOFOVIR
     Indication: HIV INFECTION
     Dosage: 1 DOSAGE FORM, QD
     Route: 048
     Dates: start: 20170324
  5. TIVICAY [Suspect]
     Active Substance: DOLUTEGRAVIR SODIUM
     Indication: HIV INFECTION
     Dosage: 50 MG, QD
     Route: 048
     Dates: start: 20161222
  6. MYSLEE [Concomitant]
     Active Substance: ZOLPIDEM TARTRATE
     Route: 048
     Dates: start: 20170401, end: 20170601
  7. HALCION [Concomitant]
     Active Substance: TRIAZOLAM
     Route: 048
     Dates: end: 20170601
  8. LENDORMIN [Concomitant]
     Active Substance: BROTIZOLAM
     Route: 048
     Dates: end: 20170601
  9. BENAMBAX [Concomitant]
     Active Substance: PENTAMIDINE
     Indication: PROPHYLAXIS
     Route: 055
     Dates: start: 20170401, end: 20170605
  10. ETIZOLAM [Concomitant]
     Active Substance: ETIZOLAM
     Route: 048
     Dates: start: 20170401, end: 20170601

REACTIONS (4)
  - Herpes zoster [Recovered/Resolved]
  - Treatment noncompliance [Not Recovered/Not Resolved]
  - Spondylitis [Recovered/Resolved]
  - Suicidal ideation [Recovering/Resolving]

NARRATIVE: CASE EVENT DATE: 20170523
